FAERS Safety Report 4278009-0 (Version None)
Quarter: 2004Q1

REPORT INFORMATION
  Report Type: 
  Country: None (occurrence: None)
  Receive Date: 20040121
  Receipt Date: 20040116
  Transmission Date: 20041129
  Serious: Yes (Other)
  Sender: FDA-Public Use
  Company Number: THQ2004A00026

PATIENT
  Age: 51 Year
  Sex: Male

DRUGS (4)
  1. LANSOPRAZOLE [Suspect]
     Indication: GASTROOESOPHAGEAL REFLUX DISEASE
     Dosage: 20 MG PER ORAL
     Route: 048
  2. LANSOPRAZOLE [Suspect]
  3. CLONIDINE [Concomitant]
  4. OXYBUTYNIN [Concomitant]

REACTIONS (4)
  - COLON CANCER [None]
  - DIARRHOEA [None]
  - GASTROINTESTINAL HAEMORRHAGE [None]
  - HEADACHE [None]
